FAERS Safety Report 9799198 (Version 2)
Quarter: 2014Q1

REPORT INFORMATION
  Report Type: Spontaneous
  Country: US (occurrence: US)
  Receive Date: 20140106
  Receipt Date: 20140106
  Transmission Date: 20141002
  Serious: Yes (Other)
  Sender: FDA-Public Use
  Company Number: US-GILEAD-2010-0033725

PATIENT
  Age: 51 Year
  Sex: Female

DRUGS (1)
  1. LETAIRIS [Suspect]
     Indication: PULMONARY ARTERIAL HYPERTENSION
     Route: 048
     Dates: start: 20090116

REACTIONS (12)
  - Swelling face [Unknown]
  - Eye swelling [Unknown]
  - Swelling [Unknown]
  - Lymphadenopathy [Unknown]
  - Sinusitis [Unknown]
  - Rhinitis [Unknown]
  - Nasal congestion [Unknown]
  - Fatigue [Unknown]
  - Feeling abnormal [Unknown]
  - Apathy [Unknown]
  - Migraine [Unknown]
  - Chest pain [Unknown]
